FAERS Safety Report 6639094-1 (Version None)
Quarter: 2010Q1

REPORT INFORMATION
  Report Type: 
  Country: None (occurrence: None)
  Receive Date: 20100312
  Receipt Date: 20100222
  Transmission Date: 20100710
  Serious: Yes (Other)
  Sender: FDA-Public Use
  Company Number: 001185

PATIENT
  Sex: Female

DRUGS (3)
  1. VIMPAT [Suspect]
     Indication: EPILEPSY
     Dosage: (DOSAGE SCHEME 1-0-1 UNIT DOSE 100)
     Dates: start: 20090416
  2. LAMOTRIGINE [Concomitant]
  3. RIVOTRIL [Concomitant]

REACTIONS (5)
  - CAESAREAN SECTION [None]
  - CONVULSION [None]
  - DRUG EXPOSURE DURING PREGNANCY [None]
  - POSTMATURE BABY [None]
  - SOMNOLENCE [None]
